FAERS Safety Report 22299466 (Version 1)
Quarter: 2023Q2

REPORT INFORMATION
  Report Type: Spontaneous
  Country: US (occurrence: US)
  Receive Date: 20230509
  Receipt Date: 20230509
  Transmission Date: 20230722
  Serious: No
  Sender: FDA-Public Use
  Company Number: US-PFIZER INC-202300175660

PATIENT
  Age: 52 Year
  Sex: Female

DRUGS (6)
  1. PAXLOVID [Suspect]
     Active Substance: NIRMATRELVIR\RITONAVIR
     Indication: COVID-19 treatment
     Dosage: UNK
     Dates: start: 20230419, end: 20230424
  2. TRUNATURE MEMORY COMPLEX [Concomitant]
     Dates: start: 20230301, end: 20230419
  3. KYOLIC AGED GARLIC EXTRACT [Concomitant]
     Dosage: UNK
     Dates: start: 20230301, end: 20230419
  4. DR. FUHRMAN [Concomitant]
     Dates: start: 20230301, end: 20230419
  5. DR. FUHRMAN [Concomitant]
     Dates: start: 20230417, end: 20230419
  6. DR. FUHRMAN [Concomitant]
     Dosage: UNK
     Dates: start: 20230417, end: 20230419

REACTIONS (1)
  - Symptom recurrence [Unknown]

NARRATIVE: CASE EVENT DATE: 20230427
